FAERS Safety Report 12173748 (Version 1)
Quarter: 2016Q1

REPORT INFORMATION
  Report Type: Spontaneous
  Country: US (occurrence: None)
  Receive Date: 20160311
  Receipt Date: 20160311
  Transmission Date: 20160526
  Serious: Yes (Other)
  Sender: FDA-Public Use
  Company Number: None

PATIENT
  Age: 31 Year
  Sex: Female
  Weight: 126.1 kg

DRUGS (2)
  1. QSYMIA [Suspect]
     Active Substance: PHENTERMINE HYDROCHLORIDE\TOPIRAMATE
     Indication: WEIGHT DECREASED
     Dosage: 1 CAPSULE QD ORAL
     Route: 048
     Dates: start: 20141118, end: 20160310
  2. ZOVIA 1/35E-28 [Suspect]
     Active Substance: ETHINYL ESTRADIOL\ETHYNODIOL DIACETATE
     Indication: POLYCYSTIC OVARIES
     Dosage: 1 TABLET QD ORAL
     Route: 048

REACTIONS (2)
  - Pregnancy on oral contraceptive [None]
  - Abortion induced [None]

NARRATIVE: CASE EVENT DATE: 20160310
